FAERS Safety Report 15890359 (Version 2)
Quarter: 2019Q1

REPORT INFORMATION
  Report Type: Report from Study
  Country: None (occurrence: DE)
  Receive Date: 20190130
  Receipt Date: 20190218
  Transmission Date: 20190417
  Serious: Yes (Death, Hospitalization)
  Sender: FDA-Public Use
  Company Number: DE-ABBVIE-19S-062-2641518-00

PATIENT
  Age: 81 Year
  Sex: Male
  Weight: 69 kg

DRUGS (9)
  1. ASTONIN [Concomitant]
     Indication: ORTHOSTATIC HYPOTENSION
     Route: 048
     Dates: start: 201801
  2. MADOPAR DEPOT [Concomitant]
     Active Substance: BENSERAZIDE HYDROCHLORIDE\LEVODOPA
     Indication: PARKINSON^S DISEASE
     Dosage: 100/25 MG
     Route: 048
  3. DUODOPA [Suspect]
     Active Substance: CARBIDOPA\LEVODOPA
     Dosage: MD 9 ML; CRD 3.1 ML/HR; ED 1 ML
     Route: 050
     Dates: start: 2018
  4. QUETIAPINE. [Concomitant]
     Active Substance: QUETIAPINE
     Indication: COGNITIVE DISORDER
     Route: 048
     Dates: start: 201504
  5. DUODOPA [Suspect]
     Active Substance: CARBIDOPA\LEVODOPA
     Indication: PARKINSON^S DISEASE
     Dosage: MD 9 ML; CRD 3.1 ML/HR; ED 1 ML
     Route: 050
     Dates: start: 20180321, end: 2018
  6. ACETYLSALICYLIC ACID [Concomitant]
     Active Substance: ASPIRIN
     Indication: PRODUCT USED FOR UNKNOWN INDICATION
     Route: 048
  7. DUODOPA [Suspect]
     Active Substance: CARBIDOPA\LEVODOPA
     Route: 050
     Dates: start: 2018, end: 2018
  8. EXELON [Concomitant]
     Active Substance: RIVASTIGMINE TARTRATE
     Indication: DEMENTIA
     Route: 062
     Dates: start: 201504
  9. PANTOZOL [Concomitant]
     Active Substance: PANTOPRAZOLE SODIUM
     Indication: PROPHYLAXIS
     Route: 048

REACTIONS (9)
  - Drug effect variable [Recovered/Resolved]
  - Drug effect variable [Recovered/Resolved]
  - Dementia [Fatal]
  - Hypotension [Unknown]
  - Fatigue [Fatal]
  - Syncope [Fatal]
  - Cognitive disorder [Recovered/Resolved]
  - Pleurisy [Unknown]
  - Pneumonia [Fatal]

NARRATIVE: CASE EVENT DATE: 20180417
